FAERS Safety Report 19660896 (Version 1)
Quarter: 2021Q3

REPORT INFORMATION
  Report Type: Report from Study
  Country: BR (occurrence: BR)
  Receive Date: 20210805
  Receipt Date: 20210805
  Transmission Date: 20211014
  Serious: No
  Sender: FDA-Public Use
  Company Number: BR-AKCEA THERAPEUTICS, INC.-2021IS001573

PATIENT
  Age: 67 Year
  Sex: Male
  Weight: 66.14 kg

DRUGS (3)
  1. VITAMIN A /00056001/ [Concomitant]
     Active Substance: RETINOL
     Route: 048
     Dates: start: 2015
  2. ISSD (INTEGRATED SYRINGE SAFETY DEVICE) [Suspect]
     Active Substance: DEVICE
  3. TEGSEDI [Suspect]
     Active Substance: INOTERSEN SODIUM
     Indication: ADENOMATOUS POLYPOSIS COLI
     Route: 058
     Dates: start: 2015

REACTIONS (3)
  - Needle issue [Unknown]
  - Device malfunction [Unknown]
  - Underdose [Unknown]

NARRATIVE: CASE EVENT DATE: 202105
